FAERS Safety Report 10908591 (Version 1)
Quarter: 2015Q1

REPORT INFORMATION
  Report Type: Spontaneous
  Country: US (occurrence: None)
  Receive Date: 20150309
  Receipt Date: 20150309
  Transmission Date: 20150721
  Serious: No
  Sender: FDA-Public Use
  Company Number: None

PATIENT
  Age: 65 Year
  Sex: Male

DRUGS (1)
  1. VELCADE [Suspect]
     Active Substance: BORTEZOMIB
     Indication: AMYLOIDOSIS
     Route: 042
     Dates: start: 20111001, end: 20120501

REACTIONS (2)
  - Light chain analysis increased [None]
  - Muscular weakness [None]

NARRATIVE: CASE EVENT DATE: 20120101
